FAERS Safety Report 8029787-6 (Version None)
Quarter: 2012Q1

REPORT INFORMATION
  Report Type: 
  Country: None (occurrence: None)
  Receive Date: 20120104
  Receipt Date: 20111219
  Transmission Date: 20120608
  Serious: Yes (Congenital Anomaly)
  Sender: FDA-Public Use
  Company Number: 1000025765

PATIENT

DRUGS (1)
  1. ESCITALOPRAM OXALATE [Suspect]
     Dosage: SEE IMAGE
     Route: 064
     Dates: start: 20100901

REACTIONS (2)
  - PULMONARY MALFORMATION [None]
  - MATERNAL DRUGS AFFECTING FOETUS [None]
